FAERS Safety Report 20112551 (Version 3)
Quarter: 2022Q1

REPORT INFORMATION
  Report Type: Spontaneous
  Country: US (occurrence: US)
  Receive Date: 20211125
  Receipt Date: 20220201
  Transmission Date: 20220423
  Serious: Yes (Other)
  Sender: FDA-Public Use
  Company Number: US-NOVARTISPH-NVSC2021US265463

PATIENT
  Sex: Male

DRUGS (1)
  1. ADAKVEO [Suspect]
     Active Substance: CRIZANLIZUMAB-TMCA
     Indication: Sickle cell anaemia with crisis
     Dosage: 10 MG/ML (INTO BLOODSTREAM VIA VEIN) QMO
     Route: 042

REACTIONS (4)
  - Thrombosis [Recovered/Resolved]
  - Pain in extremity [Recovered/Resolved]
  - Thrombophlebitis [Not Recovered/Not Resolved]
  - Skin mass [Not Recovered/Not Resolved]
